FAERS Safety Report 9108269 (Version 2)
Quarter: 2013Q3

REPORT INFORMATION
  Report Type: Report from Study
  Country: US (occurrence: US)
  Receive Date: 20130222
  Receipt Date: 20130701
  Transmission Date: 20140515
  Serious: Yes (Other)
  Sender: FDA-Public Use
  Company Number: US-ABBOTT-13P-163-1050449-00

PATIENT
  Age: 72 Year
  Sex: Female
  Weight: 67.19 kg

DRUGS (14)
  1. HUMIRA [Suspect]
     Indication: CROHN^S DISEASE
     Dates: start: 201212, end: 201305
  2. 3 UNKNOWN HIGH BLOOD PRESSURE PILLS [Concomitant]
     Indication: HYPERTENSION
  3. 1 UNKNOWN PILL FOR HIGH CHOLESTEROL [Concomitant]
     Indication: BLOOD CHOLESTEROL INCREASED
  4. HUMALOG [Concomitant]
     Indication: DIABETES MELLITUS
  5. HUMALOG [Concomitant]
     Indication: BLOOD GLUCOSE INCREASED
  6. LANTUS [Concomitant]
     Indication: DIABETES MELLITUS
     Dosage: AT BEDTIME
  7. LANTUS [Concomitant]
     Dosage: AT BEDTIME
  8. LASIX [Concomitant]
     Indication: OEDEMA PERIPHERAL
     Dosage: 40 MG DAILY
  9. POTASSIUM [Concomitant]
     Indication: PRODUCT USED FOR UNKNOWN INDICATION
  10. PRAVASTATIN [Concomitant]
     Indication: PRODUCT USED FOR UNKNOWN INDICATION
  11. NITROFURANTOIN [Concomitant]
     Indication: PRODUCT USED FOR UNKNOWN INDICATION
  12. RAMIPRIL [Concomitant]
     Indication: PRODUCT USED FOR UNKNOWN INDICATION
  13. TRAMADOL [Concomitant]
     Indication: PRODUCT USED FOR UNKNOWN INDICATION
  14. VERAPAMIL [Concomitant]
     Indication: PRODUCT USED FOR UNKNOWN INDICATION

REACTIONS (7)
  - Hypoglycaemia [Recovered/Resolved]
  - Drug effect incomplete [Not Recovered/Not Resolved]
  - Local swelling [Unknown]
  - Diarrhoea [Unknown]
  - Blood creatinine increased [Not Recovered/Not Resolved]
  - Blood glucose increased [Not Recovered/Not Resolved]
  - Platelet count decreased [Not Recovered/Not Resolved]
